FAERS Safety Report 21687732 (Version 1)
Quarter: 2022Q4

REPORT INFORMATION
  Report Type: Spontaneous
  Country: US (occurrence: US)
  Receive Date: 20221206
  Receipt Date: 20221206
  Transmission Date: 20230113
  Serious: Yes (Hospitalization)
  Sender: FDA-Public Use
  Company Number: US-SA-SAC20221206000098

PATIENT
  Sex: Female

DRUGS (18)
  1. KEVZARA [Suspect]
     Active Substance: SARILUMAB
     Indication: Rheumatoid arthritis
     Dosage: 200 MG, QOW
     Route: 058
  2. ADVAIR HFA [Concomitant]
     Active Substance: FLUTICASONE PROPIONATE\SALMETEROL XINAFOATE
  3. ALBUTEROL SULFATE [Concomitant]
     Active Substance: ALBUTEROL SULFATE
  4. CALCIUM [Concomitant]
     Active Substance: CALCIUM
  5. CETIRIZINE [Concomitant]
     Active Substance: CETIRIZINE HYDROCHLORIDE
  6. FLUTICASONE [Concomitant]
     Active Substance: FLUTICASONE
  7. LIVALO [Concomitant]
     Active Substance: PITAVASTATIN CALCIUM
  8. POTASSIUM [Concomitant]
     Active Substance: POTASSIUM
  9. SPIRIVA [Concomitant]
     Active Substance: TIOTROPIUM BROMIDE MONOHYDRATE
  10. TRULICITY [Concomitant]
     Active Substance: DULAGLUTIDE
  11. DULOXETINE [Concomitant]
     Active Substance: DULOXETINE
  12. FOLIC ACID [Concomitant]
     Active Substance: FOLIC ACID
  13. METFORMIN [Concomitant]
     Active Substance: METFORMIN HYDROCHLORIDE
  14. METHOTREXATE [Concomitant]
     Active Substance: METHOTREXATE
  15. PANTOPRAZOLE [Concomitant]
     Active Substance: PANTOPRAZOLE
  16. HYDROCHLOROTHIAZIDE [Concomitant]
     Active Substance: HYDROCHLOROTHIAZIDE
  17. HYDROCODONE BITARTRATE AND ACETAMINOPHEN [Concomitant]
     Active Substance: ACETAMINOPHEN\HYDROCODONE BITARTRATE
  18. METOPROLOL [Concomitant]
     Active Substance: METOPROLOL

REACTIONS (1)
  - COVID-19 [Not Recovered/Not Resolved]
